FAERS Safety Report 24377127 (Version 1)
Quarter: 2024Q3

REPORT INFORMATION
  Report Type: Spontaneous
  Country: US (occurrence: US)
  Receive Date: 20240930
  Receipt Date: 20240930
  Transmission Date: 20241017
  Serious: No
  Sender: KVK-TECH
  Company Number: US-KVK-TECH, INC-20240200020

PATIENT
  Sex: Female

DRUGS (1)
  1. ACETAMINOPHEN\BUTALBITAL\CAFFEINE [Suspect]
     Active Substance: ACETAMINOPHEN\BUTALBITAL\CAFFEINE
     Indication: Product used for unknown indication
     Dosage: UNK, UNKNOWN
     Route: 065

REACTIONS (1)
  - Hypersensitivity [Unknown]
